FAERS Safety Report 5590319-3 (Version None)
Quarter: 2008Q1

REPORT INFORMATION
  Report Type: 
  Country: None (occurrence: None)
  Receive Date: 20080114
  Receipt Date: 20080108
  Transmission Date: 20080703
  Serious: Yes (Hospitalization, Other)
  Sender: FDA-Public Use
  Company Number: GB-RANBAXY-2008RR-12457

PATIENT

DRUGS (3)
  1. DICLOFENAC SODIUM [Suspect]
     Dosage: 100 MG, UNK
     Route: 048
     Dates: start: 20071221
  2. EMLA [Suspect]
     Dosage: UNK
     Route: 061
     Dates: start: 20071221
  3. PARACETAMOL CAPSULES 500MG [Suspect]
     Dosage: 1 G, UNK
     Route: 048
     Dates: start: 20071221

REACTIONS (3)
  - CIRCULATORY COLLAPSE [None]
  - RASH ERYTHEMATOUS [None]
  - VOMITING [None]
